FAERS Safety Report 4317176-7 (Version None)
Quarter: 2004Q1

REPORT INFORMATION
  Report Type: 
  Country: None (occurrence: None)
  Receive Date: 20040312
  Receipt Date: 20040304
  Transmission Date: 20041129
  Serious: No
  Sender: FDA-Public Use
  Company Number: 2004UW04045

PATIENT
  Age: 77 Year
  Sex: Female

DRUGS (2)
  1. IRESSA [Suspect]
     Dates: start: 20030401
  2. TAMOXIFEN CITRATE [Concomitant]

REACTIONS (1)
  - RENAL TUBULAR ACIDOSIS [None]
